FAERS Safety Report 4582608-6 (Version None)
Quarter: 2005Q1

REPORT INFORMATION
  Report Type: 
  Country: None (occurrence: None)
  Receive Date: 20050211
  Receipt Date: 20050211
  Transmission Date: 20050727
  Serious: Yes (Hospitalization, Other)
  Sender: FDA-Public Use
  Company Number: None

PATIENT
  Sex: Female
  Weight: 58.9676 kg

DRUGS (1)
  1. AVONEX [Suspect]
     Indication: MULTIPLE SCLEROSIS
     Dosage: 30MCG/0.5ML  IM WEEKLY
     Route: 030
     Dates: start: 20050120

REACTIONS (5)
  - COMA [None]
  - DEHYDRATION [None]
  - FEELING ABNORMAL [None]
  - LETHARGY [None]
  - VOMITING [None]
